FAERS Safety Report 10016789 (Version 3)
Quarter: 2014Q3

REPORT INFORMATION
  Report Type: Spontaneous
  Country: AT (occurrence: AT)
  Receive Date: 20140318
  Receipt Date: 20140919
  Transmission Date: 20150326
  Serious: Yes (Life-Threatening, Hospitalization, Other)
  Sender: FDA-Public Use
  Company Number: PHHY2014AT027943

PATIENT
  Age: 26 Year
  Sex: Female
  Weight: 64.6 kg

DRUGS (10)
  1. PANTOLOC//PANTOPRAZOLE SODIUM SESQUIHYDRATE [Suspect]
     Active Substance: PANTOPRAZOLE SODIUM
     Dosage: 40 MG, DAILY
     Dates: start: 200910, end: 20140109
  2. NOZINAN//LEVOMEPROMAZINE MALEATE [Suspect]
     Active Substance: LEVOMEPROMAZINE
     Dosage: 200 MG, DAILY
     Dates: start: 201106, end: 20140108
  3. URSOFALK [Concomitant]
     Active Substance: URSODIOL
     Dosage: 250 MG, UNK
  4. SEROQUEL [Suspect]
     Active Substance: QUETIAPINE FUMARATE
     Dosage: 600 MG, DAILY
     Dates: start: 201106, end: 20140107
  5. ZOLDEM [Concomitant]
     Active Substance: ZOLPIDEM TARTRATE
     Dosage: 10 MG, UNK
     Dates: start: 201010, end: 20140108
  6. URBASON                                 /GFR/ [Concomitant]
     Active Substance: METHYLPREDNISOLONE
     Dosage: 2 MG, UNK
     Dates: end: 20140109
  7. TRILEPTAL [Suspect]
     Active Substance: OXCARBAZEPINE
     Dosage: 450 MG, DAILY
     Dates: start: 20120626, end: 20140107
  8. SELOKEN//METOPROLOL SUCCINATE [Suspect]
     Active Substance: METOPROLOL SUCCINATE
     Dosage: 23.7 MG, DAILY
     Route: 048
     Dates: end: 20140109
  9. SERTRALINE [Concomitant]
     Active Substance: SERTRALINE HYDROCHLORIDE
     Dosage: 150 MG, UNK
     Dates: start: 20120626, end: 20140109
  10. URSOFALK [Concomitant]
     Active Substance: URSODIOL
     Dosage: 1500 MG, UNK
     Dates: start: 20140116

REACTIONS (6)
  - Agranulocytosis [Recovering/Resolving]
  - Hyperprolactinaemia [Unknown]
  - Electrocardiogram QT prolonged [Unknown]
  - Leukopenia [Unknown]
  - Hypokalaemia [Unknown]
  - Hypocalcaemia [Unknown]

NARRATIVE: CASE EVENT DATE: 20140107
